FAERS Safety Report 17366509 (Version 4)
Quarter: 2020Q1

REPORT INFORMATION
  Report Type: Spontaneous
  Country: US (occurrence: US)
  Receive Date: 20200204
  Receipt Date: 20200331
  Transmission Date: 20200409
  Serious: No
  Sender: FDA-Public Use
  Company Number: US-PFIZER INC-2020045056

PATIENT
  Sex: Female
  Weight: 46.72 kg

DRUGS (2)
  1. NARDIL [Suspect]
     Active Substance: PHENELZINE SULFATE
     Dosage: 3 DF, DAILY
     Dates: start: 1989
  2. LITHIUM. [Concomitant]
     Active Substance: LITHIUM
     Indication: MOOD ALTERED
     Dosage: 600 MG, DAILY
     Route: 048

REACTIONS (2)
  - Constipation [Unknown]
  - Abdominal discomfort [Unknown]
